APPROVED DRUG PRODUCT: ZUMANDIMINE
Active Ingredient: DROSPIRENONE; ETHINYL ESTRADIOL
Strength: 3MG;0.03MG
Dosage Form/Route: TABLET;ORAL-28
Application: A209407 | Product #001 | TE Code: AB
Applicant: AUROBINDO PHARMA LTD
Approved: Mar 26, 2018 | RLD: No | RS: No | Type: RX